FAERS Safety Report 7637711-0 (Version None)
Quarter: 2011Q3

REPORT INFORMATION
  Report Type: 
  Country: None (occurrence: None)
  Receive Date: 20110726
  Receipt Date: 20110708
  Transmission Date: 20111222
  Serious: Yes (Hospitalization, Other)
  Sender: FDA-Public Use
  Company Number: PHHY2011US57793

PATIENT
  Sex: Female
  Weight: 78 kg

DRUGS (13)
  1. EXJADE [Suspect]
     Indication: IRON METABOLISM DISORDER
     Dosage: 375 MG, UNK
  2. NEXIUM [Concomitant]
     Dosage: 40 MG, DAILY
     Route: 048
  3. ALTACE [Concomitant]
     Dosage: 10 MG, DAILY
  4. CITRACAL [Concomitant]
  5. VITAMIN D [Concomitant]
  6. EXJADE [Suspect]
     Indication: BLOOD TEST ABNORMAL
     Dosage: 500 MG, QD
     Route: 048
     Dates: start: 20110317
  7. VERAPAMIL [Concomitant]
     Dosage: 120 MG, DAILY
     Route: 048
  8. JANUMET [Concomitant]
     Dosage: 1 DF (1000/50 MG), BID
     Route: 048
  9. LIPITOR [Concomitant]
     Dosage: 20 MG, DAILY
     Route: 048
  10. ALENDRONATE SODIUM [Concomitant]
     Dosage: 70 MG, QW
     Route: 048
  11. RAMIPRIL [Concomitant]
     Dosage: 10 MG, DAILY
     Route: 048
  12. ASPIRIN [Concomitant]
     Dosage: 81 MG, DAILY
  13. GAS X [Concomitant]

REACTIONS (6)
  - DEMENTIA [None]
  - DEEP VEIN THROMBOSIS [None]
  - THROMBOSIS [None]
  - DYSPNOEA [None]
  - PULMONARY EMBOLISM [None]
  - SWELLING [None]
